FAERS Safety Report 16891373 (Version 2)
Quarter: 2019Q4

REPORT INFORMATION
  Report Type: Spontaneous
  Country: DE (occurrence: DE)
  Receive Date: 20191007
  Receipt Date: 20191021
  Transmission Date: 20200122
  Serious: Yes (Other)
  Sender: FDA-Public Use
  Company Number: DE-US-PROVELL PHARMACEUTICALS LLC-E2B_90071148

PATIENT
  Age: 83 Year
  Sex: Female

DRUGS (7)
  1. EUTHYROX 100 NF [Suspect]
     Active Substance: LEVOTHYROXINE SODIUM
  2. NEBIVOLOL. [Concomitant]
     Active Substance: NEBIVOLOL
     Indication: HYPERTENSION
  3. EUTHYROX 100 NF [Suspect]
     Active Substance: LEVOTHYROXINE SODIUM
     Indication: POST PROCEDURAL HYPOTHYROIDISM
  4. ACTIVELLE [Concomitant]
     Active Substance: ESTRADIOL\NORETHINDRONE ACETATE
     Indication: PRODUCT USED FOR UNKNOWN INDICATION
  5. EUNOVA [Concomitant]
     Indication: PRODUCT USED FOR UNKNOWN INDICATION
  6. EUTHYROX 100 NF [Suspect]
     Active Substance: LEVOTHYROXINE SODIUM
  7. PREDNISOLONE. [Suspect]
     Active Substance: PREDNISOLONE
     Indication: PRODUCT USED FOR UNKNOWN INDICATION

REACTIONS (14)
  - Cataract [Unknown]
  - Blood pressure abnormal [Unknown]
  - Pruritus [Recovered/Resolved]
  - Insomnia [Unknown]
  - Gastrointestinal sounds abnormal [Unknown]
  - Ear discomfort [Recovered/Resolved]
  - Immune system disorder [Unknown]
  - Erythema [Unknown]
  - Breath sounds abnormal [Recovered/Resolved]
  - Off label use [Unknown]
  - Blood glucose decreased [Unknown]
  - Intentional product misuse [Unknown]
  - Malaise [Recovering/Resolving]
  - Fatigue [Unknown]

NARRATIVE: CASE EVENT DATE: 20191007
